FAERS Safety Report 4978009-9 (Version None)
Quarter: 2006Q2

REPORT INFORMATION
  Report Type: 
  Country: None (occurrence: None)
  Receive Date: 20060420
  Receipt Date: 20051003
  Transmission Date: 20061013
  Serious: Yes (Hospitalization)
  Sender: FDA-Public Use
  Company Number: US-MERCK-0510USA02670

PATIENT
  Age: 38 Year
  Sex: Female
  Weight: 116 kg

DRUGS (2)
  1. VIOXX [Suspect]
     Route: 048
     Dates: start: 20010115, end: 20020228
  2. VIOXX [Suspect]
     Route: 048
     Dates: start: 20010115, end: 20020228

REACTIONS (8)
  - ABDOMINAL ABSCESS [None]
  - ADVERSE EVENT [None]
  - ANAEMIA [None]
  - ASTHMA [None]
  - CELLULITIS [None]
  - COLONIC FISTULA [None]
  - EYE BURNS [None]
  - MYOCARDIAL INFARCTION [None]
